FAERS Safety Report 14540031 (Version 2)
Quarter: 2018Q3

REPORT INFORMATION
  Report Type: Spontaneous
  Country: US (occurrence: US)
  Receive Date: 20180216
  Receipt Date: 20180813
  Transmission Date: 20181010
  Serious: Yes (Other)
  Sender: FDA-Public Use
  Company Number: US-DSJP-DSU-2017-147944

PATIENT

DRUGS (2)
  1. BENICAR [Suspect]
     Active Substance: OLMESARTAN MEDOXOMIL
     Dosage: 20 MG, QD
     Route: 048
     Dates: start: 20110927, end: 20160818
  2. BENICAR [Suspect]
     Active Substance: OLMESARTAN MEDOXOMIL
     Indication: ESSENTIAL HYPERTENSION
     Dosage: 40 MG, QD
     Route: 048
     Dates: start: 20110927, end: 20160818

REACTIONS (7)
  - Diarrhoea [Recovering/Resolving]
  - Constipation [Unknown]
  - Weight decreased [Unknown]
  - Dizziness [Unknown]
  - Gastrooesophageal reflux disease [Recovering/Resolving]
  - Chronic kidney disease [Unknown]
  - Dehydration [Unknown]

NARRATIVE: CASE EVENT DATE: 20111006
